FAERS Safety Report 10205703 (Version 1)
Quarter: 2014Q2

REPORT INFORMATION
  Report Type: Report from Study
  Country: GB (occurrence: GB)
  Receive Date: 20140530
  Receipt Date: 20140530
  Transmission Date: 20141212
  Serious: Yes (Hospitalization)
  Sender: FDA-Public Use
  Company Number: GB-AMGEN-GBRCT2014039552

PATIENT
  Age: 54 Year
  Sex: Male
  Weight: 181 kg

DRUGS (3)
  1. ETANERCEPT [Suspect]
     Indication: PRODUCT USED FOR UNKNOWN INDICATION
     Dosage: 50 MG, QWK
     Route: 065
     Dates: start: 20101013
  2. THYROXINE [Concomitant]
     Dosage: UNK
     Dates: start: 20070101
  3. METHOTREXATE [Concomitant]
     Dosage: UNK
     Dates: start: 20120301

REACTIONS (1)
  - Gallbladder disorder [Recovered/Resolved]
